FAERS Safety Report 6461953-3 (Version None)
Quarter: 2009Q4

REPORT INFORMATION
  Report Type: 
  Country: None (occurrence: None)
  Receive Date: 20091024
  Receipt Date: 20091109
  Transmission Date: 20100525
  Serious: Yes (Hospitalization, Other)
  Sender: FDA-Public Use
  Company Number: 2009AC000043

PATIENT
  Age: 72 Year
  Sex: Male

DRUGS (63)
  1. DIGOXIN [Suspect]
     Dosage: 0.125 MG; QD; PO
     Route: 048
  2. DIGOXIN [Suspect]
     Dosage: 125 MCG; PO
     Route: 048
     Dates: start: 20050701
  3. ZOCOR [Concomitant]
  4. COUMADIN [Concomitant]
  5. CEPHULAC [Concomitant]
  6. MAGNESIUM [Concomitant]
  7. AMIODARONE HCL [Concomitant]
  8. ASPIRIN [Concomitant]
  9. PEPCID [Concomitant]
  10. HALDOL [Concomitant]
  11. PROBENECID [Concomitant]
  12. JANUVIA [Concomitant]
  13. GLIMEPIRIDE [Concomitant]
  14. JANUVIA [Concomitant]
  15. GLIMEPIRIDE [Concomitant]
  16. DOCUSATE [Concomitant]
  17. COZAAR [Concomitant]
  18. COREG [Concomitant]
  19. DOXAZOSIN [Concomitant]
  20. SLOW-MAGNESIUM [Concomitant]
  21. ZAROXOLYN [Concomitant]
  22. SYSTANE EYE DROPS [Concomitant]
  23. KIONEX [Concomitant]
  24. AMOX TR-POTASSIUM [Concomitant]
  25. PROBENECID [Concomitant]
  26. DOXAZOSIN [Concomitant]
  27. OMEPRAZOLE [Concomitant]
  28. FUROSEMIDE [Concomitant]
  29. FLOMAX [Concomitant]
  30. SIMVASTATIN [Concomitant]
  31. CARVEDILOL [Concomitant]
  32. JANUVIA [Concomitant]
  33. COZAAR [Concomitant]
  34. ALLOPURINOL [Concomitant]
  35. AMLODIPINE [Concomitant]
  36. MIDODRINE HCL [Concomitant]
  37. METOLAZONE [Concomitant]
  38. MUPIROCIN [Concomitant]
  39. PANTOPRAZOLE [Concomitant]
  40. FLUDROCORTISONE [Concomitant]
  41. TRICOR [Concomitant]
  42. CRESTOR [Concomitant]
  43. CALCITRIOL [Concomitant]
  44. NYSTATIN [Concomitant]
  45. PROTONIX [Concomitant]
  46. RIFAMPIN [Concomitant]
  47. AVELOX [Concomitant]
  48. BYETTA [Concomitant]
  49. ACTOS [Concomitant]
  50. ALTABAX [Concomitant]
  51. COREG [Concomitant]
  52. ENABLEX [Concomitant]
  53. OMACOR [Concomitant]
  54. NIASPAN [Concomitant]
  55. HYZAAR [Concomitant]
  56. AVANDARYL [Concomitant]
  57. EPOGEN [Concomitant]
  58. LAMISIL [Concomitant]
  59. PENLAC [Concomitant]
  60. METFORMIN HCL [Concomitant]
  61. QUINAPRIL HCL [Concomitant]
  62. NOVOLOG MIX 70/30 [Concomitant]
  63. ACTONEL [Concomitant]

REACTIONS (40)
  - ABDOMINAL DISCOMFORT [None]
  - ACUTE LUNG INJURY [None]
  - ALANINE AMINOTRANSFERASE INCREASED [None]
  - ANXIETY [None]
  - ARRHYTHMIA [None]
  - ASPARTATE AMINOTRANSFERASE INCREASED [None]
  - ASTHENIA [None]
  - ATRIAL FIBRILLATION [None]
  - AZOTAEMIA [None]
  - BLOOD GLUCOSE INCREASED [None]
  - CARDIAC FAILURE CONGESTIVE [None]
  - CARDIOACTIVE DRUG LEVEL INCREASED [None]
  - CHEST PAIN [None]
  - CORONARY ARTERY DISEASE [None]
  - DEEP VEIN THROMBOSIS [None]
  - DIZZINESS [None]
  - DYSPEPSIA [None]
  - ECONOMIC PROBLEM [None]
  - FLUID OVERLOAD [None]
  - HAEMATOCRIT DECREASED [None]
  - HYPERTENSION [None]
  - IMPAIRED WORK ABILITY [None]
  - ISCHAEMIA [None]
  - LOSS OF CONSCIOUSNESS [None]
  - MALIGNANT HYPERTENSION [None]
  - METABOLIC ACIDOSIS [None]
  - MULTIPLE INJURIES [None]
  - MYOCARDIAL INFARCTION [None]
  - NAUSEA [None]
  - NEAR DROWNING [None]
  - PAIN [None]
  - PNEUMONIA [None]
  - PROTEINURIA [None]
  - RENAL FAILURE [None]
  - RENAL FAILURE CHRONIC [None]
  - SEPSIS [None]
  - SOFT TISSUE DISORDER [None]
  - UNEVALUABLE EVENT [None]
  - WEIGHT DECREASED [None]
  - X-RAY LIMB ABNORMAL [None]
